FAERS Safety Report 21739644 (Version 3)
Quarter: 2023Q1

REPORT INFORMATION
  Report Type: Spontaneous
  Country: US (occurrence: US)
  Receive Date: 20221216
  Receipt Date: 20230106
  Transmission Date: 20230417
  Serious: No
  Sender: FDA-Public Use
  Company Number: US-Blueprint Medicines Corporation-645

PATIENT
  Sex: Female

DRUGS (4)
  1. AYVAKIT [Suspect]
     Active Substance: AVAPRITINIB
     Indication: Mastocytic leukaemia
     Route: 065
     Dates: start: 20210629
  2. AZITHROMYCIN [Concomitant]
     Active Substance: AZITHROMYCIN
     Indication: Product used for unknown indication
     Route: 065
  3. AMOXICILLIN [Concomitant]
     Active Substance: AMOXICILLIN
     Indication: Product used for unknown indication
     Route: 065
  4. Tivanidine [Concomitant]
     Indication: Muscle relaxant therapy
     Route: 065

REACTIONS (18)
  - Sinusitis [Unknown]
  - Malaise [Unknown]
  - Tinnitus [Unknown]
  - Dehydration [Unknown]
  - Illness [Unknown]
  - Myalgia [Unknown]
  - Muscle spasms [Unknown]
  - Electric shock sensation [Unknown]
  - Muscle strain [Unknown]
  - Nasal congestion [Unknown]
  - Rhinitis [Unknown]
  - Loss of personal independence in daily activities [Unknown]
  - Vertigo [Unknown]
  - Condition aggravated [Unknown]
  - Fatigue [Unknown]
  - Dizziness [Unknown]
  - Headache [Unknown]
  - Dyspnoea [Unknown]
